FAERS Safety Report 19375776 (Version 4)
Quarter: 2021Q3

REPORT INFORMATION
  Report Type: Report from Study
  Country: None (occurrence: US)
  Receive Date: 20210605
  Receipt Date: 20210709
  Transmission Date: 20211014
  Serious: Yes (Hospitalization, Other)
  Sender: FDA-Public Use
  Company Number: US-ABBVIE-21K-163-3930242-00

PATIENT
  Age: 84 Year
  Sex: Male
  Weight: 81.72 kg

DRUGS (6)
  1. ELIQUIS [Suspect]
     Active Substance: APIXABAN
     Dosage: DOSE DECREASED
     Route: 065
  2. COVID?19 VACCINE [Concomitant]
     Dosage: MODERNA
     Route: 030
     Dates: start: 202101, end: 202101
  3. LUPRON [Suspect]
     Active Substance: LEUPROLIDE ACETATE
     Dosage: INCREASED DOSE
     Route: 030
     Dates: start: 2018
  4. COVID?19 VACCINE [Concomitant]
     Indication: COVID-19 IMMUNISATION
     Dosage: MODERNA
     Route: 030
     Dates: start: 202012, end: 202012
  5. LUPRON [Suspect]
     Active Substance: LEUPROLIDE ACETATE
     Indication: PROSTATE CANCER
     Dosage: UNSPECIFIED DOSE
     Route: 030
  6. ELIQUIS [Suspect]
     Active Substance: APIXABAN
     Indication: AORTIC VALVE DISEASE
     Dosage: 2 TIMES A DAY
     Route: 065

REACTIONS (8)
  - Malaise [Recovered/Resolved]
  - Fall [Recovered/Resolved]
  - Arrhythmia [Recovered/Resolved]
  - Aortic valve disease [Recovered/Resolved]
  - Fall [Recovered/Resolved]
  - Fall [Recovered/Resolved]
  - Aortic valve disease [Recovered/Resolved]
  - Head injury [Recovered/Resolved]

NARRATIVE: CASE EVENT DATE: 20210324
